FAERS Safety Report 8984156 (Version 1)
Quarter: 2012Q4

REPORT INFORMATION
  Report Type: Spontaneous
  Country: US (occurrence: None)
  Receive Date: 20121213
  Receipt Date: 20121213
  Transmission Date: 20130627
  Serious: Yes (Life-Threatening, Hospitalization, Other)
  Sender: FDA-Public Use
  Company Number: MC201200698

PATIENT
  Age: 82 Year
  Sex: Male

DRUGS (4)
  1. ANGIOMAX [Suspect]
     Indication: PERCUTANEOUS CORONARY INTERVENTION
     Route: 042
     Dates: start: 20121127, end: 20121127
  2. COUMADIN (COUMADIN) [Concomitant]
  3. ASPIRIN (ACETYLSALICYLIC ACID) [Concomitant]
  4. CLOPIDOGREL (CLOPIDOGREL SULFATE) [Concomitant]

REACTIONS (6)
  - Prothrombin time prolonged [None]
  - Presyncope [None]
  - Hypotension [None]
  - Post procedural haematoma [None]
  - International normalised ratio increased [None]
  - Cardio-respiratory arrest [None]
